FAERS Safety Report 9116776 (Version 1)
Quarter: 2013Q1

REPORT INFORMATION
  Report Type: Spontaneous
  Country: US (occurrence: US)
  Receive Date: 20130225
  Receipt Date: 20130225
  Transmission Date: 20140127
  Serious: No
  Sender: FDA-Public Use
  Company Number: US-009507513-1302USA008400

PATIENT
  Age: 71 Year
  Sex: Male

DRUGS (4)
  1. CARBIDOPA (+) LEVODOPA [Suspect]
     Indication: PARKINSON^S DISEASE
     Dosage: 160 MG, QD
     Route: 048
  2. AMANTADINE HYDROCHLORIDE [Interacting]
     Indication: PARKINSONIAN GAIT
     Dosage: 100 MG, BID
     Route: 048
  3. AMANTADINE HYDROCHLORIDE [Interacting]
     Dosage: 100 MG, QD
  4. ROPINIROLE [Interacting]

REACTIONS (2)
  - Hallucination [Unknown]
  - Drug interaction [Unknown]
